FAERS Safety Report 10038749 (Version 1)
Quarter: 2014Q1

REPORT INFORMATION
  Report Type: Spontaneous
  Country: US (occurrence: US)
  Receive Date: 20140326
  Receipt Date: 20140326
  Transmission Date: 20141002
  Serious: No
  Sender: FDA-Public Use
  Company Number: US-JNJFOC-20140307231

PATIENT
  Sex: Female

DRUGS (9)
  1. SANDOZ FENTANYL TRANSDERMAL SYSTEM [Suspect]
     Indication: BACK PAIN
     Route: 062
     Dates: start: 20140226
  2. VICODIN [Concomitant]
     Indication: PAIN
     Route: 048
  3. BACLOFEN [Concomitant]
     Indication: MUSCLE SPASMS
     Route: 048
  4. FAMOTIDINE [Concomitant]
     Indication: GASTRIC DISORDER
     Route: 048
     Dates: start: 2013
  5. POTASSIUM [Concomitant]
     Indication: ELECTROLYTE SUBSTITUTION THERAPY
     Route: 048
     Dates: start: 2010
  6. ELMIRON [Concomitant]
     Indication: BLADDER HYPERTROPHY
     Route: 048
  7. SPIRONO [Concomitant]
     Indication: DIURETIC THERAPY
     Route: 048
     Dates: start: 2013
  8. VITAMIN D [Concomitant]
     Indication: BONE DISORDER
     Route: 048
     Dates: start: 2013
  9. FORTEO [Concomitant]
     Indication: BONE DISORDER
     Route: 058
     Dates: start: 2013

REACTIONS (5)
  - Incorrect drug administration duration [Not Recovered/Not Resolved]
  - Poor quality drug administered [Not Recovered/Not Resolved]
  - Product quality issue [Not Recovered/Not Resolved]
  - Wrong technique in drug usage process [Not Recovered/Not Resolved]
  - Drug ineffective [Not Recovered/Not Resolved]
